FAERS Safety Report 4595953-5 (Version None)
Quarter: 2005Q1

REPORT INFORMATION
  Report Type: 
  Country: None (occurrence: None)
  Receive Date: 20050225
  Receipt Date: 20050214
  Transmission Date: 20050727
  Serious: Yes (Life-Threatening, Hospitalization, Other)
  Sender: FDA-Public Use
  Company Number: HQWYE346315FEB05

PATIENT
  Age: 3 Year
  Sex: Female

DRUGS (2)
  1. CHILDREN'S ADVIL [Suspect]
     Indication: RHINITIS
     Dosage: ORAL
     Route: 048
     Dates: start: 20041109, end: 20041114
  2. ACETAMINOPHEN [Concomitant]

REACTIONS (9)
  - ARTHRALGIA [None]
  - BETA HAEMOLYTIC STREPTOCOCCAL INFECTION [None]
  - CONJUNCTIVITIS [None]
  - EAR INFECTION [None]
  - HEADACHE [None]
  - LYMPHADENOPATHY [None]
  - RASH MACULO-PAPULAR [None]
  - RASH PUSTULAR [None]
  - STREPTOCOCCAL BACTERAEMIA [None]
